FAERS Safety Report 4679095-6 (Version None)
Quarter: 2005Q2

REPORT INFORMATION
  Report Type: 
  Country: None (occurrence: None)
  Receive Date: 20050527
  Receipt Date: 20050401
  Transmission Date: 20051028
  Serious: No
  Sender: FDA-Public Use
  Company Number: PHEH2005US03854

PATIENT
  Age: 47 Year
  Sex: Female

DRUGS (5)
  1. ZELNORM [Suspect]
     Indication: CONSTIPATION
     Dosage: 6 MG, BID, ORAL
     Route: 048
  2. ZELNORM [Suspect]
     Indication: CONSTIPATION
     Dosage: 3 MG, BID, ORAL
     Route: 048
     Dates: start: 20050201
  3. CITRUCEL (METHYLCELLULOSE) [Concomitant]
  4. MILK OF MAGNESIA TAB [Concomitant]
  5. MIRALAX [Concomitant]

REACTIONS (5)
  - ABDOMINAL DISTENSION [None]
  - CONSTIPATION [None]
  - DRUG INEFFECTIVE [None]
  - HEADACHE [None]
  - TREMOR [None]
